FAERS Safety Report 10538784 (Version 1)
Quarter: 2014Q4

REPORT INFORMATION
  Report Type: Spontaneous
  Country: GB (occurrence: GB)
  Receive Date: 20141023
  Receipt Date: 20141023
  Transmission Date: 20150529
  Serious: Yes (Other)
  Sender: FDA-Public Use
  Company Number: GB-PFIZER INC-2014285711

PATIENT
  Age: 51 Year
  Sex: Female
  Weight: 95.3 kg

DRUGS (2)
  1. PAROXETINE [Suspect]
     Active Substance: PAROXETINE\PAROXETINE HYDROCHLORIDE
     Indication: DEPRESSION
     Dosage: 20 MG, 2X/DAY
     Dates: start: 200411, end: 201407
  2. CHAMPIX [Suspect]
     Active Substance: VARENICLINE TARTRATE
     Indication: SMOKING CESSATION THERAPY
     Dosage: 12 WEEK COURSE FINISHED. DOSAGE WAS AS DIRECTED, GRADUALLY REDUCING).
     Dates: start: 20140407, end: 20140630

REACTIONS (7)
  - Abnormal dreams [Recovering/Resolving]
  - Restlessness [Recovering/Resolving]
  - Withdrawal syndrome [Recovering/Resolving]
  - Crying [Recovering/Resolving]
  - Fatigue [Unknown]
  - Agitation [Recovering/Resolving]
  - Depression [Recovering/Resolving]

NARRATIVE: CASE EVENT DATE: 2014
